FAERS Safety Report 8622211-1 (Version None)
Quarter: 2012Q3

REPORT INFORMATION
  Report Type: 
  Country: None (occurrence: None)
  Receive Date: 20120827
  Receipt Date: 20120808
  Transmission Date: 20120928
  Serious: No
  Sender: FDA-Public Use
  Company Number: US-009507513-1208USA004180

PATIENT

DRUGS (2)
  1. REMERON [Suspect]
     Indication: SLEEP DISORDER
     Dosage: 15 MG, UNK
     Route: 048
     Dates: start: 19970801
  2. REMERON SOLTAB [Suspect]
     Indication: SLEEP DISORDER
     Dosage: 15 MG, UNK
     Dates: start: 19970801

REACTIONS (4)
  - DRUG INEFFECTIVE [None]
  - INSOMNIA [None]
  - HYPOAESTHESIA ORAL [None]
  - OFF LABEL USE [None]
